FAERS Safety Report 6974212-7 (Version None)
Quarter: 2010Q3

REPORT INFORMATION
  Report Type: 
  Country: None (occurrence: None)
  Receive Date: 20100909
  Receipt Date: 20080312
  Transmission Date: 20110219
  Serious: No
  Sender: FDA-Public Use
  Company Number: US-WYE-H02256508

PATIENT
  Sex: Female
  Weight: 90.8 kg

DRUGS (5)
  1. PROTONIX [Suspect]
     Indication: GASTROOESOPHAGEAL REFLUX DISEASE
     Route: 048
     Dates: start: 20050101
  2. FOLIC ACID [Concomitant]
  3. HYOSCYAMINE [Concomitant]
  4. COUMADIN [Concomitant]
  5. COREG [Concomitant]

REACTIONS (2)
  - ATRIAL FLUTTER [None]
  - DRUG SCREEN POSITIVE [None]
